FAERS Safety Report 25598657 (Version 1)
Quarter: 2025Q3

REPORT INFORMATION
  Report Type: Spontaneous
  Country: US (occurrence: US)
  Receive Date: 20250723
  Receipt Date: 20250723
  Transmission Date: 20251021
  Serious: Yes (Other)
  Sender: AMGEN
  Company Number: US-AMGEN-USASP2025140918

PATIENT
  Age: 72 Year
  Sex: Male

DRUGS (3)
  1. PREDNISONE [Suspect]
     Active Substance: PREDNISONE
     Indication: Myelodysplastic syndrome
     Route: 065
  2. TACROLIMUS [Concomitant]
     Active Substance: TACROLIMUS
     Indication: Myelodysplastic syndrome
     Route: 065
  3. MYCOPHENOLIC ACID [Concomitant]
     Active Substance: MYCOPHENOLIC ACID
     Indication: Myelodysplastic syndrome
     Route: 065

REACTIONS (5)
  - Septic shock [Unknown]
  - Endocarditis staphylococcal [Unknown]
  - Acute myeloid leukaemia [Unknown]
  - Pulmonary alveolar haemorrhage [Unknown]
  - Off label use [Unknown]
